FAERS Safety Report 9825853 (Version 1)
Quarter: 2014Q1

REPORT INFORMATION
  Report Type: Spontaneous
  Country: PL (occurrence: PL)
  Receive Date: 20140117
  Receipt Date: 20140117
  Transmission Date: 20141002
  Serious: Yes (Death)
  Sender: FDA-Public Use
  Company Number: PL-ACTELION-A-CH2014-93748

PATIENT
  Age: 16 Year
  Sex: Female

DRUGS (1)
  1. TRACLEER [Suspect]
     Indication: EHLERS-DANLOS SYNDROME
     Dosage: UNK
     Route: 048
     Dates: start: 20131107

REACTIONS (1)
  - Death [Fatal]
